FAERS Safety Report 9293621 (Version 1)
Quarter: 2013Q2

REPORT INFORMATION
  Report Type: Spontaneous
  Country: US (occurrence: US)
  Receive Date: 20130516
  Receipt Date: 20130516
  Transmission Date: 20140414
  Serious: No
  Sender: FDA-Public Use
  Company Number: US-BANPHARM-20120247

PATIENT
  Age: 63 Year
  Sex: Female
  Weight: 77.11 kg

DRUGS (5)
  1. IBUPROFEN CAPSULES 200 MG [Suspect]
     Indication: PAIN
     Dosage: 1-2 DF, PRN, Q4-6H,
     Route: 048
     Dates: start: 20120913, end: 20120914
  2. EQ SUPHEDRINEPE [Concomitant]
  3. CALCIUM [Concomitant]
  4. FIBER THERAPY [Concomitant]
  5. EQ ALLERGY RELIEF [Concomitant]

REACTIONS (1)
  - Abdominal pain upper [Recovered/Resolved]
